FAERS Safety Report 6673467-6 (Version None)
Quarter: 2010Q2

REPORT INFORMATION
  Report Type: 
  Country: None (occurrence: None)
  Receive Date: 20100408
  Receipt Date: 20100330
  Transmission Date: 20101027
  Serious: Yes (Death, Hospitalization, Other)
  Sender: FDA-Public Use
  Company Number: US-PFIZER INC-2010041591

PATIENT
  Sex: Male

DRUGS (1)
  1. NORVASC [Suspect]
     Dates: start: 20090701, end: 20090101

REACTIONS (6)
  - BRAIN OEDEMA [None]
  - CHEST PAIN [None]
  - DYSPNOEA [None]
  - MYOCARDIAL INFARCTION [None]
  - NEOPLASM MALIGNANT [None]
  - TREMOR [None]
